FAERS Safety Report 6387785-2 (Version None)
Quarter: 2009Q4

REPORT INFORMATION
  Report Type: 
  Country: None (occurrence: None)
  Receive Date: 20091005
  Receipt Date: 20090929
  Transmission Date: 20100525
  Serious: Yes (Other)
  Sender: FDA-Public Use
  Company Number: FR-BRISTOL-MYERS SQUIBB COMPANY-14800635

PATIENT
  Age: 12 Year
  Sex: Male

DRUGS (2)
  1. ETOPOPHOS FOR INJ 100 MG [Suspect]
     Indication: LEUKOCYTOSIS
     Dates: start: 20090926
  2. METHOTREXATE [Concomitant]
     Route: 042

REACTIONS (1)
  - CREATININE RENAL CLEARANCE DECREASED [None]
